FAERS Safety Report 7240548-8 (Version None)
Quarter: 2011Q1

REPORT INFORMATION
  Report Type: 
  Country: None (occurrence: None)
  Receive Date: 20110120
  Receipt Date: 20110120
  Transmission Date: 20110831
  Serious: Yes (Disabling)
  Sender: FDA-Public Use
  Company Number: None

PATIENT
  Sex: Female
  Weight: 52.1637 kg

DRUGS (1)
  1. NAFTIN [Suspect]
     Dosage: BOTTOM OF FOOT 1 OR 2 DAILY

REACTIONS (5)
  - ERYTHEMA [None]
  - PRURITUS [None]
  - PAIN IN EXTREMITY [None]
  - BURNING SENSATION [None]
  - SKIN DISORDER [None]
